FAERS Safety Report 17826257 (Version 1)
Quarter: 2020Q2

REPORT INFORMATION
  Report Type: Report from Study
  Country: US (occurrence: US)
  Receive Date: 20200526
  Receipt Date: 20200526
  Transmission Date: 20200714
  Serious: Yes (Death, Life-Threatening, Other)
  Sender: FDA-Public Use
  Company Number: US-SA-2020SA103915

PATIENT
  Age: 60 Year
  Sex: Male

DRUGS (7)
  1. SARILUMAB [Suspect]
     Active Substance: SARILUMAB
     Indication: CORONAVIRUS INFECTION
     Dosage: 400 MG, 1X SINGLE
     Route: 042
     Dates: start: 20200404, end: 20200404
  2. LOVENOX [Concomitant]
     Active Substance: ENOXAPARIN SODIUM
     Indication: EMBOLISM VENOUS
     Dosage: 40 MG, QD
     Route: 058
     Dates: start: 20200403
  3. CEFEPIME [Concomitant]
     Active Substance: CEFEPIME HYDROCHLORIDE
     Indication: PNEUMONIA
     Dosage: 2 G, BID
     Route: 042
     Dates: start: 20200412, end: 20200415
  4. HYDROXYCHLOROQUINE [Concomitant]
     Active Substance: HYDROXYCHLOROQUINE
     Indication: CORONAVIRUS INFECTION
     Dosage: 400 MG, BID
     Route: 048
     Dates: start: 20200402, end: 20200402
  5. AMIODARONE [Concomitant]
     Active Substance: AMIODARONE
     Indication: TACHYCARDIA
     Dosage: 150 MG, 1X SINGLE
     Route: 042
     Dates: start: 20200414, end: 20200414
  6. METHYLPREDNISOLONE. [Concomitant]
     Active Substance: METHYLPREDNISOLONE
     Indication: CORONAVIRUS INFECTION
     Dosage: 40 MG, TID
     Route: 042
     Dates: start: 20200403, end: 20200403
  7. ACETAMINOPHEN. [Concomitant]
     Active Substance: ACETAMINOPHEN
     Indication: PYREXIA
     Dosage: 1000 MG, PRN (AS NECESSARY)
     Route: 048
     Dates: start: 20200402

REACTIONS (10)
  - Liver function test increased [Not Recovered/Not Resolved]
  - Respiratory acidosis [Not Recovered/Not Resolved]
  - Renal failure [Not Recovered/Not Resolved]
  - Respiratory failure [Fatal]
  - Hypotension [Not Recovered/Not Resolved]
  - Pulseless electrical activity [Recovered/Resolved]
  - Staphylococcal infection [Not Recovered/Not Resolved]
  - Coronavirus infection [Fatal]
  - Tachycardia [Not Recovered/Not Resolved]
  - Hypercapnia [Not Recovered/Not Resolved]

NARRATIVE: CASE EVENT DATE: 20200403
